FAERS Safety Report 4540024-7 (Version None)
Quarter: 2004Q4

REPORT INFORMATION
  Report Type: 
  Country: None (occurrence: None)
  Receive Date: 20041223
  Receipt Date: 20041213
  Transmission Date: 20050328
  Serious: Yes (Death)
  Sender: FDA-Public Use
  Company Number: 200421116BWH

PATIENT

DRUGS (8)
  1. TRASYLOL [Suspect]
     Indication: HEART TRANSPLANT
     Dates: start: 20040920
  2. PROTAMINE SULFATE [Suspect]
  3. DOBUTAMINE [Concomitant]
  4. EPINEPHRINE [Concomitant]
  5. MILRINONE [Concomitant]
  6. VASOPRESSIN [Concomitant]
  7. RED BLOOD CELLS [Concomitant]
  8. FRESH FROZEN PLASMA [Concomitant]

REACTIONS (4)
  - ACIDOSIS [None]
  - CARDIAC FIBRILLATION [None]
  - INTRACARDIAC THROMBUS [None]
  - POST PROCEDURAL COMPLICATION [None]
